FAERS Safety Report 6614390-2 (Version None)
Quarter: 2010Q1

REPORT INFORMATION
  Report Type: 
  Country: None (occurrence: None)
  Receive Date: 20100304
  Receipt Date: 20100222
  Transmission Date: 20100710
  Serious: Yes (Hospitalization, Other)
  Sender: FDA-Public Use
  Company Number: DE-ABBOTT-10P-062-0619425-00

PATIENT
  Sex: Female
  Weight: 45 kg

DRUGS (8)
  1. HUMIRA [Suspect]
     Indication: PSORIASIS
     Route: 058
     Dates: start: 20090428
  2. PUVA [Concomitant]
     Indication: PSORIASIS
  3. OMEPRAZOLE [Concomitant]
     Indication: GASTROINTESTINAL MUCOSAL DISORDER
  4. ACETYLSALICYLIC ACID [Concomitant]
     Indication: CORONARY ARTERY DISEASE
  5. SIMVASTATIN [Concomitant]
     Indication: HYPERTENSION
  6. ATACAND [Concomitant]
     Indication: HYPERTENSION
  7. OXYGESIC [Concomitant]
     Indication: PAIN
  8. LACTULOSE [Concomitant]
     Indication: DRUG USE FOR UNKNOWN INDICATION

REACTIONS (14)
  - APHASIA [None]
  - CEREBRAL ARTERIOSCLEROSIS [None]
  - CEREBRAL ATROPHY [None]
  - CEREBRAL INFARCTION [None]
  - CEREBROVASCULAR ACCIDENT [None]
  - DEPRESSION [None]
  - EXTRASYSTOLES [None]
  - FALL [None]
  - GASTRITIS EROSIVE [None]
  - HEMIPARESIS [None]
  - HYPOTENSION [None]
  - LEUKOENCEPHALOPATHY [None]
  - MENTAL DISORDER [None]
  - VITAMIN B6 DEFICIENCY [None]
